FAERS Safety Report 11792561 (Version 1)
Quarter: 2015Q4

REPORT INFORMATION
  Report Type: Spontaneous
  Country: IT (occurrence: IT)
  Receive Date: 20151202
  Receipt Date: 20151202
  Transmission Date: 20160305
  Serious: Yes (Other)
  Sender: FDA-Public Use
  Company Number: IT-CIPLA LTD.-2015IT09022

PATIENT

DRUGS (4)
  1. GRANULOCYTE STIMULATING FACTOR [Suspect]
     Active Substance: GRANULOCYTE COLONY-STIMULATING FACTOR NOS
     Indication: SOFT TISSUE SARCOMA
     Dosage: 300, MICROGRAM/DAY, STARTING DAY 7 TO DAY 14
     Route: 065
  2. EPIRUBICIN [Suspect]
     Active Substance: EPIRUBICIN
     Indication: SOFT TISSUE SARCOMA
     Dosage: 60 MG/M2, ON DAY 1 AND 2, EVERY 21 DAYS
     Route: 042
     Dates: start: 20050829, end: 20050830
  3. MESNA. [Suspect]
     Active Substance: MESNA
     Indication: SOFT TISSUE SARCOMA
     Dosage: 1000 MG/M2, THREE TIMES PER DAY ON DAYS 1, 2, AND 3.
     Route: 065
  4. IFOSFAMIDE. [Suspect]
     Active Substance: IFOSFAMIDE
     Indication: SOFT TISSUE SARCOMA
     Dosage: 3000 MG/M2, PER DAYONDAYS 1, 2 AND 3
     Route: 065

REACTIONS (1)
  - Disease progression [Unknown]

NARRATIVE: CASE EVENT DATE: 20150918
